FAERS Safety Report 13431127 (Version 1)
Quarter: 2017Q2

REPORT INFORMATION
  Report Type: Spontaneous
  Country: US (occurrence: US)
  Receive Date: 20170411
  Receipt Date: 20170411
  Transmission Date: 20170830
  Serious: Yes (Hospitalization)
  Sender: FDA-Public Use
  Company Number: None

PATIENT
  Age: 53 Year
  Sex: Male
  Weight: 106 kg

DRUGS (1)
  1. ONDANSETRON [Suspect]
     Active Substance: ONDANSETRON
     Dates: start: 20110328, end: 20110328

REACTIONS (2)
  - Anaphylactic reaction [None]
  - Acute respiratory distress syndrome [None]

NARRATIVE: CASE EVENT DATE: 20110328
